FAERS Safety Report 7050488-5 (Version None)
Quarter: 2010Q4

REPORT INFORMATION
  Report Type: 
  Country: None (occurrence: None)
  Receive Date: 20101018
  Receipt Date: 20101004
  Transmission Date: 20110411
  Serious: Yes (Hospitalization, Other)
  Sender: FDA-Public Use
  Company Number: US-ELI_LILLY_AND_COMPANY-US201006005808

PATIENT
  Sex: Female

DRUGS (12)
  1. CYMBALTA [Suspect]
     Dosage: 60 MG, DAILY (1/D)
     Route: 048
  2. LYRICA [Concomitant]
     Indication: NEUROPATHY PERIPHERAL
     Dosage: 200 MG, 3/D
     Route: 048
  3. LYRICA [Concomitant]
     Dosage: 100 MG, 2/D
  4. GABAPENTIN [Concomitant]
     Indication: BACK PAIN
     Dosage: 600 MG, 3/D
     Route: 048
  5. OPIOIDS [Concomitant]
  6. BONIVA [Concomitant]
     Dosage: 150 MG, EACH MORNING
  7. VITAMIN D [Concomitant]
     Dosage: 400 U, DAILY (1/D)
     Route: 048
  8. ADVAIR DISKUS 100/50 [Concomitant]
     Dosage: 1 D/F, 2/D
     Route: 048
  9. XANAX /USA/ [Concomitant]
     Dosage: 1 MG, EACH EVENING
     Route: 048
  10. NORTRIPTYLINE [Concomitant]
     Dosage: 25 MG, EVERY 4 HRS
     Route: 048
  11. PERCOCET [Concomitant]
     Indication: PAIN
     Dosage: 7.5 MG, AS NEEDED
     Route: 048
  12. NEXIUM [Concomitant]
     Dosage: 40 MG, DAILY (1/D)
     Route: 048

REACTIONS (7)
  - BACK PAIN [None]
  - DEHYDRATION [None]
  - FALL [None]
  - LOSS OF CONSCIOUSNESS [None]
  - MALNUTRITION [None]
  - MUSCULOSKELETAL DISCOMFORT [None]
  - WHITE BLOOD CELL COUNT INCREASED [None]
